FAERS Safety Report 9501346 (Version 2)
Quarter: 2013Q3

REPORT INFORMATION
  Report Type: Report from Study
  Country: US (occurrence: US)
  Receive Date: 20130905
  Receipt Date: 20130905
  Transmission Date: 20140515
  Serious: Yes (Hospitalization, Other)
  Sender: FDA-Public Use
  Company Number: US-ABBOTT-13P-163-1068170-00

PATIENT
  Age: 32 Year
  Sex: Female
  Weight: 79.45 kg

DRUGS (11)
  1. HUMIRA [Suspect]
     Indication: CROHN^S DISEASE
     Dates: start: 201102
  2. HUMIRA [Suspect]
  3. PENTASA [Concomitant]
     Indication: CROHN^S DISEASE
  4. TOPROL [Concomitant]
     Indication: TACHYCARDIA
  5. LEVORA [Concomitant]
     Indication: CONTRACEPTION
  6. UNKNOWN VITAMIN [Concomitant]
     Indication: PRODUCT USED FOR UNKNOWN INDICATION
     Dosage: DAILY
  7. NEXIUM [Concomitant]
     Indication: GASTROOESOPHAGEAL REFLUX DISEASE
  8. NEXIUM [Concomitant]
     Indication: GASTROOESOPHAGEAL REFLUX DISEASE
  9. RANITIDINE [Concomitant]
     Indication: GASTROOESOPHAGEAL REFLUX DISEASE
  10. BIRTH CONTROL PILLS [Concomitant]
     Indication: CONTRACEPTION
  11. MVI [Concomitant]
     Indication: VITAMIN SUPPLEMENTATION

REACTIONS (9)
  - Gastrointestinal haemorrhage [Unknown]
  - Crohn^s disease [Recovered/Resolved]
  - Platelet count decreased [Unknown]
  - Anaemia [Recovered/Resolved]
  - White blood cell count decreased [Not Recovered/Not Resolved]
  - Hepatosplenomegaly [Not Recovered/Not Resolved]
  - Blood alkaline phosphatase increased [Recovered/Resolved]
  - Bronchitis [Unknown]
  - Vulvovaginal mycotic infection [Not Recovered/Not Resolved]
